FAERS Safety Report 26214383 (Version 1)
Quarter: 2025Q4

REPORT INFORMATION
  Report Type: Spontaneous
  Country: MY (occurrence: MY)
  Receive Date: 20251230
  Receipt Date: 20251230
  Transmission Date: 20260118
  Serious: Yes (Death)
  Sender: ROCHE
  Company Number: MY-ROCHE-10000470692

PATIENT
  Age: 42 Year
  Sex: Female

DRUGS (6)
  1. MYCOPHENOLATE MOFETIL [Suspect]
     Active Substance: MYCOPHENOLATE MOFETIL
     Indication: Systemic lupus erythematosus
  2. MYCOPHENOLATE MOFETIL [Suspect]
     Active Substance: MYCOPHENOLATE MOFETIL
     Indication: Lupus nephritis
  3. TACROLIMUS [Suspect]
     Active Substance: TACROLIMUS
     Indication: Systemic lupus erythematosus
  4. TACROLIMUS [Suspect]
     Active Substance: TACROLIMUS
     Indication: Lupus nephritis
  5. PREDNISOLONE [Suspect]
     Active Substance: PREDNISOLONE
     Indication: Systemic lupus erythematosus
  6. PREDNISOLONE [Suspect]
     Active Substance: PREDNISOLONE
     Indication: Lupus nephritis

REACTIONS (4)
  - Meningitis tuberculous [Fatal]
  - Bacterial colitis [Fatal]
  - Sepsis [Fatal]
  - Gastrointestinal haemorrhage [Fatal]
